FAERS Safety Report 4540138-1 (Version None)
Quarter: 2004Q4

REPORT INFORMATION
  Report Type: 
  Country: None (occurrence: None)
  Receive Date: 20041222
  Receipt Date: 20041208
  Transmission Date: 20050328
  Serious: Yes (Disabling)
  Sender: FDA-Public Use
  Company Number: GBS041216152

PATIENT
  Age: 79 Year
  Sex: Female

DRUGS (6)
  1. FORTEO [Suspect]
     Indication: OSTEOPOROSIS
     Dosage: 20 UG
     Dates: start: 20040801
  2. MORPHINE [Concomitant]
  3. DOTHIEPIN HYDROCHLORIDE [Concomitant]
  4. NITRAZEPAM [Concomitant]
  5. QUININE [Concomitant]
  6. PREDNISOLONE [Concomitant]

REACTIONS (3)
  - COUGH [None]
  - CRYING [None]
  - PAIN EXACERBATED [None]
